FAERS Safety Report 15299881 (Version 1)
Quarter: 2018Q4

REPORT INFORMATION
  Report Type: Spontaneous
  Country: NL (occurrence: NL)
  Receive Date: 20180821
  Receipt Date: 20180821
  Transmission Date: 20190204
  Serious: Yes (Congenital Anomaly)
  Sender: FDA-Public Use
  Company Number: NL-TEVA-2018-NL-944431

PATIENT
  Sex: Female

DRUGS (1)
  1. CITALOPRAM OMHULDE TABLET, 20 MG (MILLIGRAM) [Suspect]
     Active Substance: CITALOPRAM HYDROBROMIDE
     Indication: ANXIETY DISORDER
     Dosage: 20 MILLIGRAM DAILY; 1XDAY 1 PIECE
     Route: 064

REACTIONS (2)
  - Syndactyly [Not Recovered/Not Resolved]
  - Adactyly [Not Recovered/Not Resolved]
